FAERS Safety Report 22757974 (Version 4)
Quarter: 2023Q4

REPORT INFORMATION
  Report Type: Report from Study
  Country: GB (occurrence: GB)
  Receive Date: 20230727
  Receipt Date: 20231213
  Transmission Date: 20240110
  Serious: Yes (Hospitalization, Other)
  Sender: FDA-Public Use
  Company Number: GB-ABBVIE-5299829

PATIENT
  Age: 63 Year
  Sex: Male

DRUGS (27)
  1. ROPINIROLE [Suspect]
     Active Substance: ROPINIROLE
     Indication: Product used for unknown indication
     Dosage: 8 MILLIGRAM, QD
     Route: 065
  2. ROPINIROLE [Suspect]
     Active Substance: ROPINIROLE
     Dosage: 10 MILLIGRAM, QD
     Route: 065
  3. CARBIDOPA\LEVODOPA [Suspect]
     Active Substance: CARBIDOPA\LEVODOPA
     Indication: Parkinson^s disease
     Dosage: UNK (MD: 10.3, CR: 2.8 AND ED: 2.5)
     Route: 065
  4. CARBIDOPA\LEVODOPA [Suspect]
     Active Substance: CARBIDOPA\LEVODOPA
     Dosage: UNK (MD: 10.3, CR: 2.6 AND ED: 2.5)
     Route: 065
     Dates: end: 20230714
  5. CARBIDOPA\LEVODOPA [Suspect]
     Active Substance: CARBIDOPA\LEVODOPA
     Dosage: UNK (MD 10.5 MLS; CR 3.0 MLS AND ED 2.5 MLS)
     Route: 065
     Dates: end: 202306
  6. CARBIDOPA\LEVODOPA [Suspect]
     Active Substance: CARBIDOPA\LEVODOPA
     Dosage: UNK (20MG/5MG; MD 10.7 MLS; CR 3.4 MLS AND ED 2.5 MLS)
     Route: 065
  7. CARBIDOPA\LEVODOPA [Suspect]
     Active Substance: CARBIDOPA\LEVODOPA
     Dosage: UNK (MD 10.5 MLS; CR 3.2 MLS AND ED 2.5 MLS)
     Route: 065
     Dates: start: 202306, end: 2023
  8. CARBIDOPA\LEVODOPA [Suspect]
     Active Substance: CARBIDOPA\LEVODOPA
     Dosage: UNK (MD 10.5 MLS; CR 3.0 MLS AND ED 2.5 MLS)
     Route: 065
     Dates: start: 202306, end: 2023
  9. CARBIDOPA\LEVODOPA [Suspect]
     Active Substance: CARBIDOPA\LEVODOPA
     Dosage: UNK (MD: 10.3MLS, CR: 2.6MLS, ED:2.5MLS, 20MG/5MG
     Route: 065
     Dates: start: 202307, end: 2023
  10. CARBIDOPA\LEVODOPA [Suspect]
     Active Substance: CARBIDOPA\LEVODOPA
     Dosage: UNK (MD: 10.3, CR: 2.8 AND ED: 2.5,START DATE: 14-JUL-2023, LSD JUL 2023)
     Route: 065
     Dates: start: 2023
  11. CARBIDOPA\LEVODOPA [Suspect]
     Active Substance: CARBIDOPA\LEVODOPA
     Dosage: UNK (MD: 10.3, CR: 2.8 AND ED: 2.5, LSD 2023)
     Route: 065
  12. CARBIDOPA\LEVODOPA [Suspect]
     Active Substance: CARBIDOPA\LEVODOPA
     Dosage: UNK, MD: 10.3, CR: 2.8 AND ED: 2.5, LSD JULY
     Route: 065
     Dates: start: 20230714
  13. CARBIDOPA\LEVODOPA [Suspect]
     Active Substance: CARBIDOPA\LEVODOPA
     Dosage: UNK, (20MG/5MG, MD: 10.3, CR: 2.8 AND ED: 2.5)
     Route: 065
     Dates: start: 2023, end: 20230714
  14. ONGENTYS [Concomitant]
     Active Substance: OPICAPONE
     Indication: Product used for unknown indication
     Dosage: UNK
     Route: 065
     Dates: end: 20230705
  15. BENSERAZIDE HYDROCHLORIDE\LEVODOPA [Concomitant]
     Active Substance: BENSERAZIDE HYDROCHLORIDE\LEVODOPA
     Indication: Product used for unknown indication
     Dosage: UNK, 12.5/50MG 1 OR 2
     Route: 065
  16. BENSERAZIDE HYDROCHLORIDE\LEVODOPA [Concomitant]
     Active Substance: BENSERAZIDE HYDROCHLORIDE\LEVODOPA
     Dosage: UNK (25/100MG)
     Route: 065
  17. BENSERAZIDE HYDROCHLORIDE\LEVODOPA [Concomitant]
     Active Substance: BENSERAZIDE HYDROCHLORIDE\LEVODOPA
     Dosage: 62.5 MILLIGRAM, AT 2 PM
     Route: 065
  18. BENSERAZIDE HYDROCHLORIDE\LEVODOPA [Concomitant]
     Active Substance: BENSERAZIDE HYDROCHLORIDE\LEVODOPA
     Dosage: 125 MILLIGRAM, 6AM
     Route: 065
  19. BENSERAZIDE HYDROCHLORIDE\LEVODOPA [Concomitant]
     Active Substance: BENSERAZIDE HYDROCHLORIDE\LEVODOPA
     Dosage: 62.5 MILLIGRAM
     Route: 065
  20. RASAGILINE [Concomitant]
     Active Substance: RASAGILINE
     Indication: Product used for unknown indication
     Dosage: 1 MILLIGRAM, QD
     Route: 065
  21. BENSERAZIDE HYDROCHLORIDE\LEVODOPA [Concomitant]
     Active Substance: BENSERAZIDE HYDROCHLORIDE\LEVODOPA
     Indication: Product used for unknown indication
     Dosage: UNK(12.5/50MG QD )
     Route: 065
  22. BENSERAZIDE HYDROCHLORIDE\LEVODOPA [Concomitant]
     Active Substance: BENSERAZIDE HYDROCHLORIDE\LEVODOPA
     Dosage: UNK (25/100MG QD)
     Route: 065
  23. AMANTADINE [Concomitant]
     Active Substance: AMANTADINE
     Indication: Product used for unknown indication
     Dosage: 100 MILLIGRAM, 0.5 DAY
     Route: 065
  24. IPINNIA XL [Concomitant]
     Indication: Product used for unknown indication
     Dosage: 10 MILLIGRAM
     Route: 065
  25. ZOPICLONE [Concomitant]
     Active Substance: ZOPICLONE
     Indication: Product used for unknown indication
     Dosage: 3.75 MILLIGRAM, QD
     Route: 065
  26. MIRTAZAPINE [Concomitant]
     Active Substance: MIRTAZAPINE
     Indication: Product used for unknown indication
     Dosage: 45 MILLIGRAM, QD
     Route: 065
  27. NAPROXEN [Concomitant]
     Active Substance: NAPROXEN
     Indication: Product used for unknown indication
     Dosage: 250 MILLIGRAM, QD
     Route: 065

REACTIONS (40)
  - Pneumoperitoneum [Not Recovered/Not Resolved]
  - Ligament sprain [Not Recovered/Not Resolved]
  - Medical device site discomfort [Not Recovered/Not Resolved]
  - Stoma site erythema [Recovered/Resolved]
  - Malaise [Unknown]
  - Parkinson^s disease [Unknown]
  - Dyspnoea [Unknown]
  - Speech disorder [Unknown]
  - Freezing phenomenon [Recovered/Resolved]
  - Stoma site discharge [Not Recovered/Not Resolved]
  - Jaw disorder [Recovered/Resolved]
  - Unevaluable event [Unknown]
  - Musculoskeletal disorder [Unknown]
  - Weight decreased [Recovered/Resolved]
  - Hospitalisation [Recovered/Resolved]
  - Deformity [Unknown]
  - Pain in extremity [Not Recovered/Not Resolved]
  - Fall [Unknown]
  - Insomnia [Recovered/Resolved]
  - Abnormal dreams [Not Recovered/Not Resolved]
  - Swelling [Unknown]
  - Gait inability [Unknown]
  - Hypoaesthesia [Recovered/Resolved]
  - Mobility decreased [Unknown]
  - Limb discomfort [Unknown]
  - Asthenia [Not Recovered/Not Resolved]
  - Medical device discomfort [Not Recovered/Not Resolved]
  - Gait disturbance [Unknown]
  - Decreased appetite [Unknown]
  - Incorrect dose administered [Unknown]
  - Therapeutic product effect incomplete [Not Recovered/Not Resolved]
  - Blood pressure abnormal [Unknown]
  - Drug ineffective [Unknown]
  - Hypophagia [Unknown]
  - Dizziness [Unknown]
  - Depression [Recovered/Resolved]
  - Pain [Recovered/Resolved]
  - Dyskinesia [Recovered/Resolved]
  - Depressed mood [Recovered/Resolved]
  - Fatigue [Recovered/Resolved]

NARRATIVE: CASE EVENT DATE: 20230101
